FAERS Safety Report 6985877-8 (Version None)
Quarter: 2010Q3

REPORT INFORMATION
  Report Type: 
  Country: None (occurrence: None)
  Receive Date: 20100915
  Receipt Date: 20100908
  Transmission Date: 20110219
  Serious: Yes (Life-Threatening, Hospitalization, Other)
  Sender: FDA-Public Use
  Company Number: PHHY2010US35077

PATIENT
  Sex: Female

DRUGS (5)
  1. RECLAST [Suspect]
     Dosage: UNK
     Dates: start: 20090701
  2. FOSAMAX [Suspect]
  3. LIPITOR [Suspect]
  4. CLOPIDOGREL [Suspect]
  5. VITAMINS [Concomitant]

REACTIONS (12)
  - CARDIAC OPERATION [None]
  - CIRCULATORY COLLAPSE [None]
  - CORONARY ARTERY DISEASE [None]
  - COUGH [None]
  - DIARRHOEA [None]
  - FEELING ABNORMAL [None]
  - FOOT DEFORMITY [None]
  - MUSCLE SPASMS [None]
  - OPEN FRACTURE [None]
  - PAIN [None]
  - VASCULAR GRAFT [None]
  - WEIGHT DECREASED [None]
